FAERS Safety Report 4918305-4 (Version None)
Quarter: 2006Q1

REPORT INFORMATION
  Report Type: 
  Country: None (occurrence: None)
  Receive Date: 20060217
  Receipt Date: 20060217
  Transmission Date: 20060701
  Serious: Yes (Other)
  Sender: FDA-Public Use
  Company Number: None

PATIENT
  Age: 47 Year
  Sex: Male

DRUGS (1)
  1. FLUOROURACIL [Suspect]
     Indication: RECTAL CANCER
     Dosage: 225 MG/M2/DAY - 475 MG/ DAY  CONTINUOUS INFUSION
     Dates: start: 20060109

REACTIONS (2)
  - MUCOSAL INFLAMMATION [None]
  - PHARMACEUTICAL PRODUCT COMPLAINT [None]
